FAERS Safety Report 4666128-6 (Version None)
Quarter: 2005Q2

REPORT INFORMATION
  Report Type: 
  Country: None (occurrence: None)
  Receive Date: 20050519
  Receipt Date: 20050512
  Transmission Date: 20051028
  Serious: Yes (Hospitalization)
  Sender: FDA-Public Use
  Company Number: US-JNJFOC-20050503759

PATIENT
  Sex: Female
  Weight: 99.79 kg

DRUGS (2)
  1. DURAGESIC-100 [Suspect]
     Route: 062
     Dates: start: 20020601
  2. FLEXERIL [Concomitant]
     Indication: PAIN
     Route: 049
     Dates: start: 20010101

REACTIONS (2)
  - DIFFICULTY IN WALKING [None]
  - PAIN [None]
